FAERS Safety Report 6425994-4 (Version None)
Quarter: 2009Q4

REPORT INFORMATION
  Report Type: 
  Country: None (occurrence: None)
  Receive Date: 20091103
  Receipt Date: 20091020
  Transmission Date: 20100525
  Serious: Yes (Other)
  Sender: FDA-Public Use
  Company Number: PHHY2009DE45391

PATIENT
  Sex: Male
  Weight: 61 kg

DRUGS (2)
  1. ZOMETA [Suspect]
     Indication: BONE DISORDER
     Dosage: 4 MG EVERY 4 WEEKS
     Route: 042
     Dates: start: 20080529
  2. SUTENT [Concomitant]
     Dosage: UNK
     Dates: start: 20070824

REACTIONS (8)
  - CONFUSIONAL STATE [None]
  - DIARRHOEA [None]
  - DISORIENTATION [None]
  - HYPONATRAEMIA [None]
  - MALIGNANT NEOPLASM PROGRESSION [None]
  - METASTASES TO ADRENALS [None]
  - PALMAR-PLANTAR ERYTHRODYSAESTHESIA SYNDROME [None]
  - SPEECH DISORDER [None]
